FAERS Safety Report 14958464 (Version 3)
Quarter: 2018Q2

REPORT INFORMATION
  Report Type: Spontaneous
  Country: GB (occurrence: GB)
  Receive Date: 20180531
  Receipt Date: 20180611
  Transmission Date: 20180711
  Serious: Yes (Congenital Anomaly, Other)
  Sender: FDA-Public Use
  Company Number: GB-PFIZER INC-2018218482

PATIENT

DRUGS (8)
  1. METHOTREXATE SODIUM. [Suspect]
     Active Substance: METHOTREXATE SODIUM
     Indication: GESTATIONAL TROPHOBLASTIC TUMOUR
     Dosage: 300 MG/M2, UNK
     Route: 064
  2. DACTINOMYCIN [Suspect]
     Active Substance: DACTINOMYCIN
     Indication: GESTATIONAL TROPHOBLASTIC TUMOUR
     Dosage: 0.5 MG, UNK
     Route: 064
  3. METHOTREXATE SODIUM. [Suspect]
     Active Substance: METHOTREXATE SODIUM
     Dosage: 1000 MG/M2, UNK
     Route: 064
  4. VINCRISTINE SULFATE. [Suspect]
     Active Substance: VINCRISTINE SULFATE
     Indication: GESTATIONAL TROPHOBLASTIC TUMOUR
     Dosage: 0.8 MG/M2, UNK
     Route: 064
  5. FOLINIC ACID [Concomitant]
     Active Substance: LEUCOVORIN
     Dosage: 15 MG, 4X/DAY (1 EVERY 6 HOURS)
     Route: 064
  6. CYCLOPHOSPHAMIDE. [Suspect]
     Active Substance: CYCLOPHOSPHAMIDE
     Indication: GESTATIONAL TROPHOBLASTIC TUMOUR
     Dosage: 600 MG/M2, UNK
     Route: 064
  7. ETOPOSIDE. [Suspect]
     Active Substance: ETOPOSIDE
     Indication: GESTATIONAL TROPHOBLASTIC TUMOUR
     Dosage: 100 MG/M2, UNK
     Route: 064
  8. FOLINIC ACID [Concomitant]
     Active Substance: LEUCOVORIN
     Indication: GESTATIONAL TROPHOBLASTIC TUMOUR
     Dosage: 30 MG, 1X/DAY
     Route: 064

REACTIONS (2)
  - Maternal exposure before pregnancy [Unknown]
  - Trisomy 21 [Unknown]
